FAERS Safety Report 7957298-2 (Version None)
Quarter: 2011Q4

REPORT INFORMATION
  Report Type: 
  Country: None (occurrence: None)
  Receive Date: 20111205
  Receipt Date: 20111201
  Transmission Date: 20120403
  Serious: Yes (Hospitalization)
  Sender: FDA-Public Use
  Company Number: DE-BAYER-2011-115830

PATIENT
  Age: 71 Year
  Sex: Female

DRUGS (6)
  1. PRASUGREL [Suspect]
     Indication: STENT PLACEMENT
     Dosage: 10 MG, QD
     Route: 048
     Dates: start: 20110807
  2. SIMVASTATIN [Concomitant]
     Dosage: 40 MG, QD
     Dates: start: 20110707
  3. EPLERENONE [Suspect]
     Indication: ACUTE MYOCARDIAL INFARCTION
     Dosage: UNK
     Dates: start: 20110708
  4. RAMIPRIL [Concomitant]
     Dosage: 2.5 MG, QD
     Dates: start: 20110708
  5. ASPIRIN [Suspect]
     Indication: CORONARY ARTERY DISEASE
     Dosage: 100 MG, QID
     Route: 048
     Dates: start: 20110808
  6. BISOPROLOL FUMARATE [Concomitant]
     Dosage: 5 MG, QD
     Dates: start: 20110201

REACTIONS (6)
  - DIARRHOEA [None]
  - HAEMORRHOIDS [None]
  - SYNCOPE [None]
  - COLONIC POLYP [None]
  - ANAL HAEMORRHAGE [None]
  - GASTRITIS [None]
